FAERS Safety Report 7374538-1 (Version None)
Quarter: 2011Q1

REPORT INFORMATION
  Report Type: 
  Country: None (occurrence: None)
  Receive Date: 20110307
  Receipt Date: 20110224
  Transmission Date: 20110831
  Serious: Yes (Disabling, Other)
  Sender: FDA-Public Use
  Company Number: 2011PROUSA00233

PATIENT
  Age: 74 Year
  Sex: Male

DRUGS (3)
  1. PROVENGE [Suspect]
     Dosage: 250 ML, SINGLE, INTRAVENOUS
     Route: 042
     Dates: start: 20110110, end: 20110110
  2. PROVENGE [Suspect]
     Indication: PROSTATE CANCER METASTATIC
     Dosage: 250 ML, SINGLE, INTRAVENOUS
     Route: 042
     Dates: start: 20101213, end: 20101213
  3. PROVENGE [Suspect]
     Dosage: 250 ML, SINGLE, INTRAVENOUS
     Route: 042
     Dates: start: 20110124, end: 20110124

REACTIONS (9)
  - ASTHENIA [None]
  - BALANCE DISORDER [None]
  - MOTOR DYSFUNCTION [None]
  - ABASIA [None]
  - FATIGUE [None]
  - BONE PAIN [None]
  - ANAEMIA [None]
  - FALL [None]
  - PAIN [None]
